FAERS Safety Report 5217663-3 (Version None)
Quarter: 2007Q1

REPORT INFORMATION
  Report Type: 
  Country: None (occurrence: None)
  Receive Date: 20061130
  Receipt Date: 20060502
  Transmission Date: 20070707
  Serious: Yes (Other)
  Sender: FDA-Public Use
  Company Number: US200602002432

PATIENT
  Age: 35 Year
  Sex: Female
  Weight: 95.2 kg

DRUGS (4)
  1. ZYPREXA [Suspect]
     Indication: BIPOLAR I DISORDER
     Dosage: 2.5 MG, ORAL
     Route: 048
     Dates: start: 20010101, end: 20050101
  2. ZYPREXA ZYDIS [Suspect]
     Indication: BIPOLAR I DISORDER
     Dosage: 5 MG, DAILY (1/D) ORAL
     Route: 048
     Dates: start: 20050101, end: 20060101
  3. ZYPREXA ZYDIS [Suspect]
     Indication: BIPOLAR I DISORDER
     Dosage: 5 MG, DAILY (1/D) ORAL
     Route: 048
     Dates: start: 20060101
  4. TRILEPTAL [Concomitant]

REACTIONS (4)
  - BLOOD GLUCOSE INCREASED [None]
  - DRUG EXPOSURE DURING PREGNANCY [None]
  - GESTATIONAL DIABETES [None]
  - WEIGHT INCREASED [None]
